FAERS Safety Report 4332747-X (Version None)
Quarter: 2004Q1

REPORT INFORMATION
  Report Type: 
  Country: None (occurrence: None)
  Receive Date: 20040330
  Receipt Date: 20040315
  Transmission Date: 20041129
  Serious: Yes (Death)
  Sender: FDA-Public Use
  Company Number: F01200301538

PATIENT
  Age: 74 Year
  Sex: Male

DRUGS (5)
  1. (OXALIPLATIN) - SOLUTION - 130 MG/M2 [Suspect]
     Indication: RECTAL CANCER
     Dosage: 130 MG/M2 Q3W; TIME TO ONSET: 4 DAYS
     Route: 042
     Dates: start: 20031202, end: 20031202
  2. (CAPECITABINE) - TABLET - 2000 MG/M2 [Suspect]
     Dosage: 1000 MG/M2 TWICE A DAY GIVEN ORALLY FOR 14 DAYS FOLLOWED BY 7 DAYS REST; TIME ONSET : 4 DAYS
     Route: 048
     Dates: start: 20031202, end: 20031206
  3. VENTOLIN [Concomitant]
  4. BECOTIDE (BECLOMETASONE DIPROPIONATE) [Concomitant]
  5. TAMSULOSIN [Concomitant]

REACTIONS (3)
  - LEFT VENTRICULAR FAILURE [None]
  - PULMONARY OEDEMA [None]
  - SUDDEN DEATH [None]
